FAERS Safety Report 18395310 (Version 1)
Quarter: 2020Q4

REPORT INFORMATION
  Report Type: Other
  Country: DE (occurrence: DE)
  Receive Date: 20201017
  Receipt Date: 20201017
  Transmission Date: 20210114
  Serious: Yes (Other)
  Sender: FDA-Public Use
  Company Number: DE-LUPIN PHARMACEUTICALS INC.-2020-07200

PATIENT
  Age: 63 Year
  Sex: Female
  Weight: 96 kg

DRUGS (11)
  1. OXYCODONE HYDROCHLORIDE. [Interacting]
     Active Substance: OXYCODONE HYDROCHLORIDE
     Indication: TRIGEMINAL NEURALGIA
  2. OXYCODONE HYDROCHLORIDE. [Interacting]
     Active Substance: OXYCODONE HYDROCHLORIDE
     Indication: PAIN
  3. GABAPENTIN. [Concomitant]
     Active Substance: GABAPENTIN
     Dosage: 600 MILLIGRAM, TID
     Route: 065
  4. OXYCODONE HYDROCHLORIDE. [Suspect]
     Active Substance: OXYCODONE HYDROCHLORIDE
     Indication: POLYNEUROPATHY
     Dosage: 30 MILLIGRAM, QID (REGULAR USE FOR MORE THAN 2 YEARS)
     Route: 065
  5. MOVENTIG [Interacting]
     Active Substance: NALOXEGOL OXALATE
     Indication: CONSTIPATION
     Dosage: 1X12.5MG TAKING AT 9:00 A.M
     Route: 048
     Dates: start: 20200707
  6. MOVENTIG [Interacting]
     Active Substance: NALOXEGOL OXALATE
     Dosage: 1X12.5MG TAKEN FOR THE 1ST TIME TAKING AT 9:00 A.M.
     Route: 048
     Dates: start: 20200703
  7. OXYCODONE HYDROCHLORIDE. [Interacting]
     Active Substance: OXYCODONE HYDROCHLORIDE
     Indication: MITOCHONDRIAL MYOPATHY
  8. OXYGESIC [Concomitant]
     Active Substance: OXYCODONE
     Indication: PRODUCT USED FOR UNKNOWN INDICATION
     Dosage: 20MG IF NEEDED REGULAR USE FOR MORE THAN 2 YEARS
     Route: 065
  9. PRADAXA [Concomitant]
     Active Substance: DABIGATRAN ETEXILATE MESYLATE
     Indication: PRODUCT USED FOR UNKNOWN INDICATION
     Dosage: 150 MG HARD CAPSULES 1-0-1-0 REGULAR USE FOR MORE THAN 2 YEARS
     Route: 065
  10. LEVETIRACETAM. [Concomitant]
     Active Substance: LEVETIRACETAM
     Indication: PRODUCT USED FOR UNKNOWN INDICATION
     Dosage: 500 MG 2-0-2-0 REGULAR USE FOR MORE THAN 2 YEARS
     Route: 065
  11. GABAPENTIN. [Concomitant]
     Active Substance: GABAPENTIN
     Indication: PRODUCT USED FOR UNKNOWN INDICATION
     Dosage: REGULAR USE FOR MORE THAN 2 YEARS
     Route: 065

REACTIONS (12)
  - Drug interaction [Recovered/Resolved]
  - Nausea [Recovered/Resolved]
  - Hyperhidrosis [Recovered/Resolved]
  - Restlessness [Recovered/Resolved]
  - Myalgia [Recovered/Resolved]
  - Neuralgia [Recovered/Resolved]
  - Decreased appetite [Recovered/Resolved]
  - Abdominal pain [Recovered/Resolved]
  - Drug withdrawal syndrome [Recovered/Resolved]
  - Rhinorrhoea [Recovered/Resolved]
  - Palpitations [Recovered/Resolved]
  - Anxiety [Recovered/Resolved]

NARRATIVE: CASE EVENT DATE: 20200703
